FAERS Safety Report 24589692 (Version 1)
Quarter: 2024Q4

REPORT INFORMATION
  Report Type: Spontaneous
  Country: US (occurrence: US)
  Receive Date: 20241107
  Receipt Date: 20241107
  Transmission Date: 20250114
  Serious: No
  Sender: AVERITAS
  Company Number: US-GRUNENTHAL-2024-136026

PATIENT
  Age: 90 Year
  Sex: Male

DRUGS (5)
  1. QUTENZA [Suspect]
     Active Substance: CAPSAICIN
     Indication: Diabetic neuropathy
     Dosage: 4 DOSAGE FORM, ONCE
     Route: 061
     Dates: start: 20241105, end: 20241105
  2. QUTENZA [Suspect]
     Active Substance: CAPSAICIN
     Dosage: UNK
     Route: 061
     Dates: start: 20231218, end: 20231218
  3. QUTENZA [Suspect]
     Active Substance: CAPSAICIN
     Dosage: UNK
     Route: 061
     Dates: start: 20240411, end: 20240411
  4. QUTENZA [Suspect]
     Active Substance: CAPSAICIN
     Dosage: UNK
     Route: 061
     Dates: start: 20240730, end: 20240730
  5. UNSPECIFIED INGREDIENT [Concomitant]
     Active Substance: UNSPECIFIED INGREDIENT
     Dosage: UNK
     Route: 065

REACTIONS (1)
  - Application site pain [Unknown]

NARRATIVE: CASE EVENT DATE: 20241105
